FAERS Safety Report 25308866 (Version 4)
Quarter: 2025Q4

REPORT INFORMATION
  Report Type: Spontaneous
  Country: US (occurrence: US)
  Receive Date: 20250513
  Receipt Date: 20251004
  Transmission Date: 20260118
  Serious: No
  Sender: SANOFI AVENTIS
  Company Number: US-SA-2025SA134265

PATIENT
  Age: 57 Year
  Sex: Female

DRUGS (6)
  1. DUPIXENT [Suspect]
     Active Substance: DUPILUMAB
     Indication: Asthma
     Dosage: 600 MG, 1X
     Route: 058
     Dates: start: 20250428, end: 20250428
  2. DUPIXENT [Suspect]
     Active Substance: DUPILUMAB
     Indication: Chronic obstructive pulmonary disease
     Dosage: 300 MG, QOW
     Route: 058
     Dates: start: 202505, end: 2025
  3. ADEMPAS [Concomitant]
     Active Substance: RIOCIGUAT
     Dosage: UNK
  4. PROLIA [Concomitant]
     Active Substance: DENOSUMAB
     Dosage: UNK (SYR)
  5. OXYGEN [Concomitant]
     Active Substance: OXYGEN
     Dosage: UNK
  6. OXYGEN [Concomitant]
     Active Substance: OXYGEN
     Dosage: 4 L

REACTIONS (9)
  - Injection site mass [Recovered/Resolved]
  - Injection site urticaria [Not Recovered/Not Resolved]
  - Weight decreased [Unknown]
  - Nasal congestion [Recovering/Resolving]
  - Chest pain [Recovering/Resolving]
  - Injection site rash [Recovered/Resolved]
  - Injection site pruritus [Recovered/Resolved]
  - Injection site pain [Not Recovered/Not Resolved]
  - Incorrect dose administered [Unknown]

NARRATIVE: CASE EVENT DATE: 20250101
